FAERS Safety Report 6924709-0 (Version None)
Quarter: 2010Q3

REPORT INFORMATION
  Report Type: 
  Country: None (occurrence: None)
  Receive Date: 20100816
  Receipt Date: 20100809
  Transmission Date: 20110219
  Serious: No
  Sender: FDA-Public Use
  Company Number: US-BIOGENIDEC-2010BI027450

PATIENT
  Age: 45 Year
  Sex: Female

DRUGS (1)
  1. TYSABRI [Suspect]
     Indication: MULTIPLE SCLEROSIS
     Route: 042
     Dates: start: 20080619

REACTIONS (5)
  - BACK PAIN [None]
  - CONTUSION [None]
  - FIBROMYALGIA [None]
  - LOSS OF CONTROL OF LEGS [None]
  - ROAD TRAFFIC ACCIDENT [None]
